FAERS Safety Report 6051905-X (Version None)
Quarter: 2009Q1

REPORT INFORMATION
  Report Type: 
  Country: None (occurrence: None)
  Receive Date: 20090122
  Receipt Date: 20090122
  Transmission Date: 20090719
  Serious: No
  Sender: FDA-Public Use
  Company Number: None

PATIENT
  Age: 65 Year
  Sex: Female
  Weight: 76.2043 kg

DRUGS (2)
  1. DICLOFENAC GENERIC FOR VOLTAREN 75MG SANDOZ [Suspect]
     Indication: INTERVERTEBRAL DISC PROTRUSION
     Dosage: 1 TABLET 2X DAILY PO
     Route: 048
  2. DICLOFENAC GENERIC FOR VOLTAREN 75MG SANDOZ [Suspect]
     Indication: SCIATICA
     Dosage: 1 TABLET 2X DAILY PO
     Route: 048

REACTIONS (1)
  - BLOOD GLUCOSE DECREASED [None]
